FAERS Safety Report 5787845-0 (Version None)
Quarter: 2008Q2

REPORT INFORMATION
  Report Type: 
  Country: None (occurrence: None)
  Receive Date: 20080618
  Receipt Date: 20070709
  Transmission Date: 20081010
  Serious: Yes (Other)
  Sender: FDA-Public Use
  Company Number: 200711098US

PATIENT
  Age: 71 Year
  Sex: Female
  Weight: 60.91 kg

DRUGS (15)
  1. LANTUS [Suspect]
     Indication: TYPE 1 DIABETES MELLITUS
     Dosage: 11 U QD
     Dates: start: 20061117
  2. LANTUS [Suspect]
     Indication: TYPE 1 DIABETES MELLITUS
     Dosage: 6 UNITS IN AM AND 5 UNITS IN PM U
  3. LANTUS [Suspect]
     Indication: TYPE 1 DIABETES MELLITUS
  4. OPTICLIK [Suspect]
     Indication: TYPE 1 DIABETES MELLITUS
     Dates: start: 20070101
  5. INSULIN LISPRO (HUMALOG /01293501/) [Suspect]
     Indication: TYPE 1 DIABETES MELLITUS
     Dates: start: 20070119
  6. ZOCOR [Concomitant]
  7. ASPIRIN [Concomitant]
  8. ERGOCALCIFEROL, ASCORBIC ACID, FOLIC ACID, THIAMINE [Concomitant]
  9. HYDROCHLORIDE, RETINOL, RIBOFLAVIN, NICOTINAMIDE [Concomitant]
  10. PANTHENOL (MULTIVITAMINS) [Concomitant]
  11. CALCIUM [Concomitant]
  12. TRANDOLAPRIL [Concomitant]
  13. GLIPIZIDE [Concomitant]
  14. GLIPIZIDE [Concomitant]
  15. ENALAPRIL [Concomitant]

REACTIONS (2)
  - BLOOD GLUCOSE INCREASED [None]
  - HYPOGLYCAEMIA [None]
